FAERS Safety Report 19323311 (Version 1)
Quarter: 2021Q2

REPORT INFORMATION
  Report Type: Other
  Country: GB (occurrence: GB)
  Receive Date: 20210528
  Receipt Date: 20210528
  Transmission Date: 20210717
  Serious: Yes (Death, Hospitalization, Other)
  Sender: FDA-Public Use
  Company Number: GB-STRIDES ARCOLAB LIMITED-2021SP005873

PATIENT
  Age: 80 Year
  Sex: Female

DRUGS (4)
  1. RANITIDINE. [Suspect]
     Active Substance: RANITIDINE
     Dosage: UNK
     Route: 065
  2. RANITIDINE. [Suspect]
     Active Substance: RANITIDINE
     Indication: CHOLELITHOTOMY
     Dosage: 150 MILLIGRAM, BID
     Route: 065
     Dates: start: 201812
  3. WARFARIN [Suspect]
     Active Substance: WARFARIN
     Indication: THROMBOSIS
     Dosage: UNK
     Route: 065
  4. APIXABAN [Suspect]
     Active Substance: APIXABAN
     Indication: PRODUCT USED FOR UNKNOWN INDICATION
     Dosage: UNK
     Route: 065

REACTIONS (9)
  - Intestinal obstruction [Fatal]
  - Cholelithiasis [Fatal]
  - Diarrhoea [Fatal]
  - Illness [Fatal]
  - Off label use [Unknown]
  - Hepatic failure [Fatal]
  - Condition aggravated [Fatal]
  - Weight decreased [Fatal]
  - Vomiting [Fatal]

NARRATIVE: CASE EVENT DATE: 20190506
